FAERS Safety Report 9858654 (Version 1)
Quarter: 2014Q1

REPORT INFORMATION
  Report Type: Spontaneous
  Country: US (occurrence: None)
  Receive Date: 20140130
  Receipt Date: 20140130
  Transmission Date: 20141002
  Serious: Yes (Other)
  Sender: FDA-Public Use
  Company Number: None

PATIENT
  Age: 60 Year
  Sex: Male

DRUGS (1)
  1. LEVOFLOXACIN 500MG TABLETS WALGREENS [Suspect]
     Indication: INFECTION
     Dosage: 1 PILL QD ORAL
     Route: 048
     Dates: start: 20140107, end: 20140109

REACTIONS (3)
  - Rash generalised [None]
  - Rash pruritic [None]
  - Rash erythematous [None]
